FAERS Safety Report 14852357 (Version 1)
Quarter: 2018Q2

REPORT INFORMATION
  Report Type: Spontaneous
  Country: US (occurrence: US)
  Receive Date: 20180507
  Receipt Date: 20180507
  Transmission Date: 20180711
  Serious: No
  Sender: FDA-Public Use
  Company Number: US-PFIZER INC-2018181368

PATIENT
  Age: 1 Year
  Sex: Male

DRUGS (1)
  1. HYDROCORTISONE. [Suspect]
     Active Substance: HYDROCORTISONE
     Dosage: UNK (LOW PHYSIOLOGIC DOSING)

REACTIONS (3)
  - Irritability [Unknown]
  - Lethargy [Unknown]
  - Fatigue [Unknown]
